FAERS Safety Report 5651978-X (Version None)
Quarter: 2008Q1

REPORT INFORMATION
  Report Type: 
  Country: None (occurrence: None)
  Receive Date: 20080305
  Receipt Date: 20080222
  Transmission Date: 20080703
  Serious: Yes (Life-Threatening, Other)
  Sender: FDA-Public Use
  Company Number: GB-PFIZER INC-2008011807

PATIENT
  Sex: Female
  Weight: 46 kg

DRUGS (1)
  1. CHANTIX [Suspect]
     Indication: EX-SMOKER
     Route: 048
     Dates: start: 20071101, end: 20071101

REACTIONS (3)
  - ANHEDONIA [None]
  - DEPRESSION [None]
  - SUICIDAL IDEATION [None]
